FAERS Safety Report 24673576 (Version 1)
Quarter: 2024Q4

REPORT INFORMATION
  Report Type: Report from Study
  Country: GB (occurrence: GB)
  Receive Date: 20241128
  Receipt Date: 20241128
  Transmission Date: 20250115
  Serious: Yes (Death, Hospitalization, Other)
  Sender: CELLTRION
  Company Number: GB-CELLTRION INC.-2024GB009183

PATIENT

DRUGS (1)
  1. ADALIMUMAB-AATY [Suspect]
     Active Substance: ADALIMUMAB-AATY
     Indication: Rheumatoid arthritis
     Dosage: YUFLYMA 40MG FOR INJECTION PEN
     Route: 058
     Dates: start: 202312

REACTIONS (4)
  - Death [Fatal]
  - COVID-19 [Unknown]
  - Infection [Unknown]
  - Intentional dose omission [Unknown]
